FAERS Safety Report 9679191 (Version 2)
Quarter: 2013Q4

REPORT INFORMATION
  Report Type: Spontaneous
  Country: CH (occurrence: CH)
  Receive Date: 20131108
  Receipt Date: 20131108
  Transmission Date: 20140711
  Serious: Yes (Other)
  Sender: FDA-Public Use
  Company Number: CH-GILEAD-2011-0046606

PATIENT
  Sex: Male

DRUGS (1)
  1. ATRIPLA [Suspect]
     Indication: HIV INFECTION
     Dosage: UNK
     Dates: start: 201008

REACTIONS (3)
  - Phosphorus metabolism disorder [Unknown]
  - Vitamin D decreased [Unknown]
  - Blood alkaline phosphatase increased [Unknown]
